FAERS Safety Report 22226941 (Version 6)
Quarter: 2025Q3

REPORT INFORMATION
  Report Type: Spontaneous
  Country: EU (occurrence: EU)
  Receive Date: 20230419
  Receipt Date: 20250708
  Transmission Date: 20251020
  Serious: Yes (Hospitalization, Other)
  Sender: AUROBINDO
  Company Number: EU-MYLANLABS-2023M1037407

PATIENT
  Age: 5 Year

DRUGS (4)
  1. VORICONAZOLE [Suspect]
     Active Substance: VORICONAZOLE
     Indication: Aspergillus infection
     Route: 065
  2. CASPOFUNGIN [Suspect]
     Active Substance: CASPOFUNGIN
     Indication: Aspergillus infection
     Route: 065
  3. MEROPENEM [Concomitant]
     Active Substance: MEROPENEM
     Indication: Antibiotic therapy
     Route: 065
  4. LINEZOLID [Concomitant]
     Active Substance: LINEZOLID
     Indication: Antibiotic therapy
     Route: 065

REACTIONS (6)
  - Electrocardiogram repolarisation abnormality [Unknown]
  - Nausea [Unknown]
  - Sinus tachycardia [Unknown]
  - Gastrointestinal disorder [Unknown]
  - Toxicity to various agents [Recovering/Resolving]
  - Drug level increased [Recovered/Resolved]
